FAERS Safety Report 21478714 (Version 1)
Quarter: 2022Q4

REPORT INFORMATION
  Report Type: Spontaneous
  Country: US (occurrence: US)
  Receive Date: 20221019
  Receipt Date: 20221019
  Transmission Date: 20230113
  Serious: No
  Sender: FDA-Public Use
  Company Number: US-BEH-2022150789

PATIENT
  Sex: Female
  Weight: 49.887 kg

DRUGS (2)
  1. HIZENTRA [Suspect]
     Active Substance: HUMAN IMMUNOGLOBULIN G
     Indication: Humoral immune defect
     Dosage: TOTAL MONTHLY DOSE 14 GRAM
     Route: 058
     Dates: start: 20190425
  2. HIZENTRA [Suspect]
     Active Substance: HUMAN IMMUNOGLOBULIN G
     Dosage: TOTAL MONTHLY DOSE 14 GRAM
     Route: 058
     Dates: start: 20190425

REACTIONS (2)
  - Weight increased [Unknown]
  - Infection [Unknown]
